FAERS Safety Report 11221049 (Version 1)
Quarter: 2015Q2

REPORT INFORMATION
  Report Type: Report from Study
  Country: BR (occurrence: BR)
  Receive Date: 20150626
  Receipt Date: 20150626
  Transmission Date: 20150821
  Serious: Yes (Other)
  Sender: FDA-Public Use
  Company Number: BR-ROCHE-1596558

PATIENT
  Age: 65 Year
  Sex: Female

DRUGS (1)
  1. MABTHERA [Suspect]
     Active Substance: RITUXIMAB
     Indication: RHEUMATOID ARTHRITIS
     Dosage: 100 MG/ 10 ML 2 VIALS
     Route: 042
     Dates: start: 20120424

REACTIONS (9)
  - Somnolence [Unknown]
  - Aphasia [Unknown]
  - Diabetes mellitus [Unknown]
  - Hypersensitivity [Unknown]
  - Sedation [Unknown]
  - Laryngeal oedema [Unknown]
  - Blood pressure increased [Unknown]
  - Amnesia [Unknown]
  - Dyspnoea [Unknown]

NARRATIVE: CASE EVENT DATE: 20141211
